FAERS Safety Report 9027210 (Version 1)
Quarter: 2013Q1

REPORT INFORMATION
  Report Type: Spontaneous
  Country: US (occurrence: US)
  Receive Date: 20130123
  Receipt Date: 20130123
  Transmission Date: 20140127
  Serious: No
  Sender: FDA-Public Use
  Company Number: US-ASTRAZENECA-2013SE02242

PATIENT
  Sex: Female

DRUGS (6)
  1. NEXIUM [Suspect]
     Indication: GASTROOESOPHAGEAL REFLUX DISEASE
     Route: 048
     Dates: start: 200907, end: 2012
  2. NEXIUM [Suspect]
     Indication: HIATUS HERNIA
     Route: 048
     Dates: start: 200907, end: 2012
  3. NEXIUM [Suspect]
     Indication: GASTROOESOPHAGEAL REFLUX DISEASE
     Dosage: NEKSIUM FROM CANADIAN PHARMACY
     Route: 048
     Dates: start: 201209
  4. NEXIUM [Suspect]
     Indication: HIATUS HERNIA
     Dosage: NEKSIUM FROM CANADIAN PHARMACY
     Route: 048
     Dates: start: 201209
  5. NEXIUM [Suspect]
     Indication: GASTROOESOPHAGEAL REFLUX DISEASE
     Route: 048
     Dates: start: 201210
  6. NEXIUM [Suspect]
     Indication: HIATUS HERNIA
     Route: 048
     Dates: start: 201210

REACTIONS (5)
  - Oesophageal pain [Unknown]
  - Hunger [Unknown]
  - Influenza [Unknown]
  - Food craving [Unknown]
  - Off label use [Unknown]
